FAERS Safety Report 19405007 (Version 1)
Quarter: 2021Q2

REPORT INFORMATION
  Report Type: Spontaneous
  Country: US (occurrence: US)
  Receive Date: 20210611
  Receipt Date: 20210611
  Transmission Date: 20210717
  Serious: Yes (Hospitalization)
  Sender: FDA-Public Use
  Company Number: US-ROCHE-2224875

PATIENT
  Sex: Female

DRUGS (5)
  1. COPAXONE [Concomitant]
     Active Substance: GLATIRAMER ACETATE
  2. KLONOPIN [Suspect]
     Active Substance: CLONAZEPAM
     Indication: PRODUCT USED FOR UNKNOWN INDICATION
     Dosage: Q.H.S (EVERY BED TIME)
     Route: 065
  3. BACLOFEN. [Concomitant]
     Active Substance: BACLOFEN
  4. ASPIRIN. [Concomitant]
     Active Substance: ASPIRIN
  5. ROBAXIN [Concomitant]
     Active Substance: METHOCARBAMOL

REACTIONS (3)
  - Influenza like illness [Unknown]
  - Pneumonia [Unknown]
  - Tremor [Unknown]
